FAERS Safety Report 12447016 (Version 1)
Quarter: 2016Q2

REPORT INFORMATION
  Report Type: Report from Study
  Country: US (occurrence: US)
  Receive Date: 20160608
  Receipt Date: 20160608
  Transmission Date: 20160815
  Serious: Yes (Other)
  Sender: FDA-Public Use
  Company Number: PHEH2016US013955

PATIENT
  Sex: Female
  Weight: 56.69 kg

DRUGS (1)
  1. GILENYA [Suspect]
     Active Substance: FINGOLIMOD HYDROCHLORIDE
     Indication: MULTIPLE SCLEROSIS
     Dosage: 0.5 MG, QD
     Route: 048
     Dates: start: 20160118

REACTIONS (5)
  - Metamorphopsia [Unknown]
  - Nerve injury [Unknown]
  - Visual impairment [Unknown]
  - Cataract [Unknown]
  - Macular oedema [Unknown]
